FAERS Safety Report 9417510 (Version 1)
Quarter: 2013Q3

REPORT INFORMATION
  Report Type: Spontaneous
  Country: US (occurrence: None)
  Receive Date: 20130722
  Receipt Date: 20130722
  Transmission Date: 20140515
  Serious: No
  Sender: FDA-Public Use
  Company Number: None

PATIENT
  Age: 40 Year
  Sex: 0
  Weight: 53.52 kg

DRUGS (1)
  1. CEPHALEXIN [Suspect]
     Indication: ACNE
     Dosage: JUNE 26-JULY 2
     Route: 048
     Dates: start: 20130626, end: 20130702

REACTIONS (2)
  - Aphthous stomatitis [None]
  - Oropharyngeal pain [None]
